FAERS Safety Report 11741127 (Version 3)
Quarter: 2016Q1

REPORT INFORMATION
  Report Type: Spontaneous
  Country: US (occurrence: US)
  Receive Date: 20151116
  Receipt Date: 20160201
  Transmission Date: 20160525
  Serious: Yes (Death, Other)
  Sender: FDA-Public Use
  Company Number: US-ROCHE-ITM201506IM017126

PATIENT
  Age: 76 Year
  Sex: Female
  Weight: 49.03 kg

DRUGS (2)
  1. ESBRIET [Suspect]
     Active Substance: PIRFENIDONE
     Dosage: 3 CAPSULES THRICE A DAY
     Route: 048
  2. ESBRIET [Suspect]
     Active Substance: PIRFENIDONE
     Indication: IDIOPATHIC PULMONARY FIBROSIS
     Dosage: DAILY WITH FOOD
     Route: 048
     Dates: start: 20150403

REACTIONS (6)
  - Oxygen saturation decreased [Unknown]
  - Alpha-1 anti-trypsin deficiency [Fatal]
  - Asthenia [Unknown]
  - Nausea [Unknown]
  - Rash [Recovered/Resolved]
  - Back pain [Unknown]

NARRATIVE: CASE EVENT DATE: 201505
